FAERS Safety Report 4511729-9 (Version None)
Quarter: 2004Q4

REPORT INFORMATION
  Report Type: 
  Country: None (occurrence: None)
  Receive Date: 20041129
  Receipt Date: 20041119
  Transmission Date: 20050328
  Serious: Yes (Death)
  Sender: FDA-Public Use
  Company Number: 200414340FR

PATIENT
  Age: 87 Year
  Sex: Male

DRUGS (9)
  1. LASILIX 40 MG [Suspect]
     Route: 048
  2. DEPAKENE [Suspect]
     Route: 048
  3. DAFLON [Suspect]
     Route: 048
  4. MOTILIUM [Suspect]
     Route: 048
  5. PENTASA [Suspect]
     Route: 048
  6. ASPIRIN [Suspect]
     Route: 048
     Dates: end: 20031122
  7. STILNOX [Suspect]
     Route: 048
  8. XATRAL LP 5 MG [Suspect]
     Route: 048
  9. KARDEGIC [Concomitant]
     Route: 048

REACTIONS (6)
  - FALL [None]
  - HEAD INJURY [None]
  - LOSS OF CONSCIOUSNESS [None]
  - MALAISE [None]
  - SKIN INJURY [None]
  - SUBARACHNOID HAEMORRHAGE [None]
